FAERS Safety Report 9752043 (Version 1)
Quarter: 2013Q4

REPORT INFORMATION
  Report Type: Spontaneous
  Country: BR (occurrence: BR)
  Receive Date: 20131213
  Receipt Date: 20131213
  Transmission Date: 20140711
  Serious: Yes (Other)
  Sender: FDA-Public Use
  Company Number: BR-ACCORD-020703

PATIENT
  Age: 59 Year
  Sex: Female
  Weight: 57 kg

DRUGS (10)
  1. PACLITAXEL [Suspect]
     Indication: CHEMOTHERAPY
     Route: 042
     Dates: start: 20130121, end: 20130520
  2. RANITIDINE [Concomitant]
     Route: 042
     Dates: start: 20130121, end: 20130520
  3. ONDANSETRON [Concomitant]
     Route: 042
     Dates: start: 20130121, end: 20130520
  4. DEXAMETHASONE [Concomitant]
     Route: 048
     Dates: start: 20130120, end: 20130723
  5. DIPYRONE [Concomitant]
     Dosage: 40 GTS
     Route: 048
     Dates: start: 20130517, end: 20130617
  6. DIPHENHYDRAMINE [Concomitant]
     Route: 042
     Dates: start: 20130121, end: 20130520
  7. DEXAMETHASONE [Concomitant]
     Route: 061
     Dates: start: 20130517, end: 20130617
  8. CARBOPLATIN [Concomitant]
     Route: 042
     Dates: start: 20130121, end: 20130520
  9. DEXAMETHASONE [Concomitant]
     Route: 042
     Dates: start: 20130121, end: 20130520
  10. ONDANSETRON [Concomitant]
     Route: 048
     Dates: start: 20130122, end: 20130723

REACTIONS (2)
  - Oropharyngeal discomfort [Recovered/Resolved]
  - Cough [Recovered/Resolved]
